FAERS Safety Report 10732515 (Version 1)
Quarter: 2015Q1

REPORT INFORMATION
  Report Type: Spontaneous
  Country: US (occurrence: None)
  Receive Date: 20150120
  Receipt Date: 20150120
  Transmission Date: 20150721
  Serious: Yes (Death)
  Sender: FDA-Public Use
  Company Number: 2015010117

PATIENT
  Age: 35 Year
  Sex: Female

DRUGS (3)
  1. CARISOPRODOL (CARISOPRODOL) [Suspect]
     Active Substance: CARISOPRODOL
  2. COCAINE (COCAINE) [Suspect]
     Active Substance: COCAINE
  3. ALPRAZOLAM (ALPRAZOLAM) [Suspect]
     Active Substance: ALPRAZOLAM

REACTIONS (3)
  - Cardiac arrest [None]
  - Respiratory arrest [None]
  - Exposure via ingestion [None]

NARRATIVE: CASE EVENT DATE: 2013
